FAERS Safety Report 9809302 (Version 4)
Quarter: 2014Q2

REPORT INFORMATION
  Report Type: Spontaneous
  Country: US (occurrence: US)
  Receive Date: 20140110
  Receipt Date: 20140523
  Transmission Date: 20141212
  Serious: Yes (Other)
  Sender: FDA-Public Use
  Company Number: US-ELI_LILLY_AND_COMPANY-US201401000264

PATIENT
  Age: 76 Year
  Sex: Female
  Weight: 94.79 kg

DRUGS (16)
  1. HUMALOG LISPRO [Suspect]
     Indication: TYPE 2 DIABETES MELLITUS
     Dosage: 8 U, TID
     Route: 058
     Dates: start: 2009
  2. HUMALOG LISPRO [Suspect]
     Route: 058
  3. HUMALOG LISPRO [Suspect]
     Route: 058
  4. HUMALOG LISPRO [Suspect]
     Dosage: 8 U, TID
     Route: 058
  5. LANTUS [Concomitant]
  6. HYDROCHLOROTHIAZIDE [Concomitant]
     Dosage: 25 MG, QD
  7. COMPAZINE                          /00013302/ [Concomitant]
     Dosage: UNK, PRN
  8. LISINOPRIL [Concomitant]
     Dosage: 20 MG, QD
  9. PROTONIX [Concomitant]
     Dosage: 40 MG, QD
  10. IRON [Concomitant]
     Dosage: 1 DF, QD
  11. NITROFURANTOIN [Concomitant]
     Dosage: 100 MG, BID
  12. VICODIN [Concomitant]
     Dosage: UNK, PRN
  13. CRANBERRY                          /01512301/ [Concomitant]
     Dosage: 1 DF, QD
  14. ALEVE [Concomitant]
     Dosage: 220 MG, PRN
  15. COLACE [Concomitant]
     Dosage: UNK, QD
  16. DOXYCYCLINE [Concomitant]
     Dosage: 100 MG, QD

REACTIONS (3)
  - Metastatic malignant melanoma [Not Recovered/Not Resolved]
  - Visual acuity reduced [Not Recovered/Not Resolved]
  - Malaise [Not Recovered/Not Resolved]
